FAERS Safety Report 4784311-6 (Version None)
Quarter: 2005Q3

REPORT INFORMATION
  Report Type: 
  Country: None (occurrence: None)
  Receive Date: 20050930
  Receipt Date: 20030804
  Transmission Date: 20060218
  Serious: Yes (Death, Hospitalization)
  Sender: FDA-Public Use
  Company Number: 200317057US

PATIENT
  Sex: Female

DRUGS (1)
  1. ARAVA [Suspect]
     Indication: RHEUMATOID ARTHRITIS
     Dosage: DOSE: UNK
     Dates: start: 20020101, end: 20030730

REACTIONS (9)
  - COLLAPSE OF LUNG [None]
  - DIARRHOEA [None]
  - HYPERTENSION [None]
  - INTESTINAL OBSTRUCTION [None]
  - METRORRHAGIA [None]
  - MYOCARDIAL INFARCTION [None]
  - NAUSEA [None]
  - RASH [None]
  - UTERINE CANCER [None]
